FAERS Safety Report 18972518 (Version 1)
Quarter: 2021Q1

REPORT INFORMATION
  Report Type: Spontaneous
  Country: TR (occurrence: TR)
  Receive Date: 20210305
  Receipt Date: 20210305
  Transmission Date: 20210420
  Serious: Yes (Hospitalization, Other)
  Sender: FDA-Public Use
  Company Number: TR-ALKEM LABORATORIES LIMITED-TR-ALKEM-2020-08834

PATIENT
  Age: 16 Year
  Sex: Female

DRUGS (1)
  1. COLCHICINE. [Suspect]
     Active Substance: COLCHICINE
     Indication: PRODUCT USED FOR UNKNOWN INDICATION
     Dosage: 1 MILLIGRAM, QD
     Route: 065

REACTIONS (14)
  - Renal impairment [Recovered/Resolved]
  - Acute phase reaction [Recovered/Resolved]
  - Alopecia [Recovered/Resolved]
  - Toxicity to various agents [Unknown]
  - Leukocytosis [Recovered/Resolved]
  - Hepatic enzyme increased [Recovered/Resolved]
  - Diarrhoea [Recovered/Resolved]
  - Platelet count increased [Recovered/Resolved]
  - Rash maculo-papular [Recovered/Resolved]
  - Bicytopenia [Recovered/Resolved]
  - Purpura [Recovered/Resolved]
  - Vomiting [Recovered/Resolved]
  - Myalgia [Recovered/Resolved]
  - Nausea [Recovered/Resolved]
